FAERS Safety Report 14404003 (Version 6)
Quarter: 2019Q1

REPORT INFORMATION
  Report Type: Report from Study
  Country: CA (occurrence: CA)
  Receive Date: 20180117
  Receipt Date: 20190123
  Transmission Date: 20190417
  Serious: Yes (Other)
  Sender: FDA-Public Use
  Company Number: CA-INCYTE CORPORATION-2018IN000373

PATIENT

DRUGS (6)
  1. JAKAVI [Suspect]
     Active Substance: RUXOLITINIB
     Dosage: 10 MG, BID
     Route: 048
  2. JAKAVI [Suspect]
     Active Substance: RUXOLITINIB
     Indication: POLYCYTHAEMIA VERA
     Dosage: 5 MG, BID
     Route: 048
     Dates: start: 20171211
  3. ALLOPURINOL. [Concomitant]
     Active Substance: ALLOPURINOL
     Indication: PRODUCT USED FOR UNKNOWN INDICATION
     Dosage: UNK
     Route: 065
  4. ANAGRELIDE. [Concomitant]
     Active Substance: ANAGRELIDE HYDROCHLORIDE
     Indication: PRODUCT USED FOR UNKNOWN INDICATION
     Dosage: UNK
     Route: 065
  5. JAKAVI [Suspect]
     Active Substance: RUXOLITINIB
     Dosage: 20 MG, BID
     Route: 048
  6. JAKAVI [Suspect]
     Active Substance: RUXOLITINIB
     Dosage: 20 MG, BID
     Route: 048

REACTIONS (13)
  - Arrhythmia [Unknown]
  - Platelet count decreased [Unknown]
  - Blood count abnormal [Unknown]
  - Swelling [Unknown]
  - Drug ineffective [Unknown]
  - Pulmonary embolism [Unknown]
  - Eye disorder [Unknown]
  - Platelet count increased [Unknown]
  - Feeling cold [Recovering/Resolving]
  - Blood potassium increased [Unknown]
  - Fatigue [Unknown]
  - Haemoglobin decreased [Unknown]
  - Raynaud^s phenomenon [Recovering/Resolving]

NARRATIVE: CASE EVENT DATE: 201811
